FAERS Safety Report 6104027-3 (Version None)
Quarter: 2009Q1

REPORT INFORMATION
  Report Type: 
  Country: None (occurrence: None)
  Receive Date: 20090227
  Receipt Date: 20080227
  Transmission Date: 20090719
  Serious: Yes (Other)
  Sender: FDA-Public Use
  Company Number: 525713

PATIENT
  Age: 14 Year
  Sex: Male

DRUGS (2)
  1. ACCUTANE [Suspect]
     Indication: ACNE CYSTIC
     Dosage: 40 MG
     Dates: start: 20070907, end: 20071015
  2. ANTIBIOTIC NOS (ANTIBIOTIC NOS) [Concomitant]

REACTIONS (1)
  - CONVULSION [None]
